FAERS Safety Report 14534371 (Version 1)
Quarter: 2018Q1

REPORT INFORMATION
  Report Type: Report from Study
  Country: AU (occurrence: AU)
  Receive Date: 20180215
  Receipt Date: 20180215
  Transmission Date: 20180509
  Serious: Yes (Hospitalization, Other)
  Sender: FDA-Public Use
  Company Number: AU-MYLANLABS-2017M1058617

PATIENT
  Age: 41 Year
  Sex: Female

DRUGS (1)
  1. CLOZARIL [Suspect]
     Active Substance: CLOZAPINE
     Indication: SCHIZOPHRENIA
     Dosage: 150 MG, UNK
     Route: 048
     Dates: start: 20040128, end: 20170911

REACTIONS (6)
  - Adverse event [Unknown]
  - Leukopenia [Recovered/Resolved]
  - Diarrhoea [Unknown]
  - Lymphocyte count decreased [Recovered/Resolved]
  - Red cell distribution width increased [Recovered/Resolved]
  - Neutropenia [Recovered/Resolved]

NARRATIVE: CASE EVENT DATE: 201709
